FAERS Safety Report 22000142 (Version 1)
Quarter: 2023Q1

REPORT INFORMATION
  Report Type: Spontaneous
  Country: CN (occurrence: CN)
  Receive Date: 20230216
  Receipt Date: 20230216
  Transmission Date: 20230418
  Serious: Yes (Other)
  Sender: FDA-Public Use
  Company Number: CN-PFIZER INC-PV202300027696

PATIENT
  Age: 42 Year
  Sex: Female
  Weight: 65 kg

DRUGS (3)
  1. EPIRUBICIN [Suspect]
     Active Substance: EPIRUBICIN
     Indication: Symptomatic treatment
     Dosage: 120 MG, 1X/DAY
     Route: 041
     Dates: start: 20220923, end: 20220923
  2. CYCLOPHOSPHAMIDE [Concomitant]
     Active Substance: CYCLOPHOSPHAMIDE
     Indication: Symptomatic treatment
     Dosage: 0.8 G, 1X/DAY
     Route: 042
     Dates: start: 20220923, end: 20220923
  3. KE AI LI [Concomitant]
     Indication: Symptomatic treatment
     Dosage: 0.4 G, 1X/DAY
     Route: 041
     Dates: start: 20220923, end: 20220923

REACTIONS (2)
  - Hepatic function abnormal [Recovering/Resolving]
  - Condition aggravated [Recovering/Resolving]

NARRATIVE: CASE EVENT DATE: 20221110
